FAERS Safety Report 8503466-0 (Version None)
Quarter: 2012Q3

REPORT INFORMATION
  Report Type: 
  Country: None (occurrence: None)
  Receive Date: 20120711
  Receipt Date: 20120705
  Transmission Date: 20120928
  Serious: Yes (Other)
  Sender: FDA-Public Use
  Company Number: US-GLAXOSMITHKLINE-A0983404A

PATIENT
  Age: 56 Year
  Sex: Male

DRUGS (8)
  1. DIOVAN [Concomitant]
  2. NEXIUM [Concomitant]
  3. LOVAZA [Concomitant]
  4. AMLODIPINE BESYLATE [Concomitant]
  5. LEVOCETIRIZINE HYDROCHLORIDE [Concomitant]
  6. ADVAIR DISKUS 100/50 [Suspect]
     Indication: PRODUCT USED FOR UNKNOWN INDICATION
     Dosage: 1PUFF TWICE PER DAY
     Route: 055
     Dates: start: 20100101, end: 20120703
  7. SINGULAIR [Concomitant]
  8. SIMVASTATIN [Concomitant]

REACTIONS (4)
  - DYSPNOEA [None]
  - ANXIETY [None]
  - INSOMNIA [None]
  - PNEUMONIA [None]
